FAERS Safety Report 4967031-4 (Version None)
Quarter: 2006Q1

REPORT INFORMATION
  Report Type: 
  Country: None (occurrence: None)
  Receive Date: 20060201
  Receipt Date: 20051205
  Transmission Date: 20060701
  Serious: No
  Sender: FDA-Public Use
  Company Number: 2005PV005428

PATIENT
  Age: 41 Year
  Sex: Female
  Weight: 82.5547 kg

DRUGS (2)
  1. BYETTA [Suspect]
     Indication: DIABETES MELLITUS NON-INSULIN-DEPENDENT
     Dosage: SEE IMAGE
     Route: 058
     Dates: start: 20051024, end: 20050101
  2. BYETTA [Suspect]
     Indication: DIABETES MELLITUS NON-INSULIN-DEPENDENT
     Dosage: SEE IMAGE
     Route: 058
     Dates: start: 20051126

REACTIONS (5)
  - EYE SWELLING [None]
  - PRURITUS [None]
  - RASH GENERALISED [None]
  - URTICARIA [None]
  - WEIGHT DECREASED [None]
